FAERS Safety Report 6805829-8 (Version None)
Quarter: 2010Q2

REPORT INFORMATION
  Report Type: 
  Country: None (occurrence: None)
  Receive Date: 20100629
  Receipt Date: 20080905
  Transmission Date: 20101027
  Serious: No
  Sender: FDA-Public Use
  Company Number: US-PFIZER INC-2005037867

PATIENT
  Sex: Male
  Weight: 81.65 kg

DRUGS (5)
  1. VIAGRA [Suspect]
     Indication: ERECTILE DYSFUNCTION
     Route: 048
  2. ATIVAN [Concomitant]
     Route: 048
  3. ZANTAC [Concomitant]
     Route: 048
  4. VALIUM [Concomitant]
  5. ACETYLSALICYLIC ACID [Concomitant]

REACTIONS (3)
  - DYSGEUSIA [None]
  - FLUSHING [None]
  - HEART RATE INCREASED [None]
